FAERS Safety Report 9429965 (Version 1)
Quarter: 2013Q3

REPORT INFORMATION
  Report Type: Report from Study
  Country: US (occurrence: US)
  Receive Date: 20130730
  Receipt Date: 20130730
  Transmission Date: 20140515
  Serious: No
  Sender: FDA-Public Use
  Company Number: US-ABBOTT-13P-163-1048595-00

PATIENT
  Sex: Male
  Weight: 97.16 kg

DRUGS (9)
  1. NIASPAN (COATED) [Suspect]
     Indication: HYPERTENSION
     Route: 048
  2. NIASPAN (COATED) [Suspect]
     Indication: BLOOD TRIGLYCERIDES INCREASED
     Route: 048
  3. NIASPAN (COATED) [Suspect]
     Route: 048
  4. ASPIRIN [Concomitant]
     Indication: PRODUCT USED FOR UNKNOWN INDICATION
     Dosage: PRIOR TO HIS DOSE OF NIASPAN
     Route: 048
  5. UNKNOWN PILLS [Concomitant]
     Indication: DIABETES MELLITUS
     Route: 048
  6. UNKNOWN PILLS [Concomitant]
     Indication: BLOOD PRESSURE
  7. DIURETIC [Concomitant]
     Indication: PRODUCT USED FOR UNKNOWN INDICATION
     Route: 048
  8. FISH OIL [Concomitant]
     Indication: PRODUCT USED FOR UNKNOWN INDICATION
  9. UNKNOWN OTHER SUPPLEMENTS [Concomitant]
     Indication: PRODUCT USED FOR UNKNOWN INDICATION

REACTIONS (5)
  - Blood pressure abnormal [Unknown]
  - Flushing [Unknown]
  - Nasopharyngitis [Recovering/Resolving]
  - Pollakiuria [Not Recovered/Not Resolved]
  - Insomnia [Not Recovered/Not Resolved]
